FAERS Safety Report 13823172 (Version 1)
Quarter: 2017Q3

REPORT INFORMATION
  Report Type: Spontaneous
  Country: GB (occurrence: GB)
  Receive Date: 20170801
  Receipt Date: 20170801
  Transmission Date: 20171127
  Serious: Yes (Hospitalization)
  Sender: FDA-Public Use
  Company Number: GB-TEVA-789978ACC

PATIENT
  Age: 38 Year
  Sex: Female

DRUGS (1)
  1. CICLOSPORIN [Suspect]
     Active Substance: CYCLOSPORINE
     Indication: PSORIASIS
     Dosage: 150 MILLIGRAM DAILY;
     Route: 065
     Dates: start: 20100917

REACTIONS (3)
  - Biliary colic [Unknown]
  - Weight decreased [Unknown]
  - Hypertension [Unknown]
